FAERS Safety Report 4788176-8 (Version None)
Quarter: 2005Q3

REPORT INFORMATION
  Report Type: 
  Country: None (occurrence: None)
  Receive Date: 20050920
  Receipt Date: 20040816
  Transmission Date: 20060218
  Serious: Yes (Hospitalization, Other)
  Sender: FDA-Public Use
  Company Number: PHEH2004US08867

PATIENT
  Age: 83 Year
  Sex: Female

DRUGS (4)
  1. DIOVAN [Suspect]
     Indication: HYPERTENSION
     Dosage: 160 MG, BID, ORAL; SEE IMAGE
     Route: 048
     Dates: start: 20010101
  2. CAPTOPRIL [Concomitant]
  3. DIURETICS ^WATER PILL^ (NO INGREDIENTS/SUBSTANCES) [Concomitant]
  4. VITAMINS (NO INGREDIENTS/SUBSTANCES) [Concomitant]

REACTIONS (1)
  - BLOOD PRESSURE INCREASED [None]
